FAERS Safety Report 6874134-6 (Version None)
Quarter: 2010Q3

REPORT INFORMATION
  Report Type: 
  Country: None (occurrence: None)
  Receive Date: 20100723
  Receipt Date: 20090519
  Transmission Date: 20110219
  Serious: Yes (Other)
  Sender: FDA-Public Use
  Company Number: US-PFIZER INC-2009210200

PATIENT
  Sex: Female
  Weight: 72.6 kg

DRUGS (3)
  1. CHANTIX [Suspect]
     Indication: EX-TOBACCO USER
     Dosage: 0.5 MG, 1X/DAY
     Route: 048
     Dates: start: 20090419, end: 20090401
  2. CHANTIX [Suspect]
     Dosage: 1 MG, 2X/DAY
     Route: 048
     Dates: start: 20090427, end: 20090429
  3. ALL OTHER THERAPEUTIC PRODUCTS [Concomitant]
     Dosage: UNK

REACTIONS (1)
  - HALLUCINATION [None]
